FAERS Safety Report 10437853 (Version 1)
Quarter: 2014Q3

REPORT INFORMATION
  Report Type: Report from Study
  Country: BR (occurrence: BR)
  Receive Date: 20140908
  Receipt Date: 20140908
  Transmission Date: 20150326
  Serious: Yes (Other)
  Sender: FDA-Public Use
  Company Number: BR-ABBVIE-14K-020-1280862-00

PATIENT
  Age: 56 Year
  Sex: Female
  Weight: 94 kg

DRUGS (1)
  1. HUMIRA [Suspect]
     Active Substance: ADALIMUMAB
     Indication: ANKYLOSING SPONDYLITIS
     Route: 058
     Dates: start: 20120101, end: 20140807

REACTIONS (1)
  - Tendon rupture [Recovering/Resolving]

NARRATIVE: CASE EVENT DATE: 201401
